FAERS Safety Report 24549958 (Version 1)
Quarter: 2024Q4

REPORT INFORMATION
  Report Type: Other
  Country: US (occurrence: US)
  Receive Date: 20241025
  Receipt Date: 20241025
  Transmission Date: 20250114
  Serious: Yes (Hospitalization)
  Sender: MADRIGAL PHARMACEUTICALS
  Company Number: US-MADRIGAL PHARMACEUTICALS, INC-2024REZ2045

PATIENT

DRUGS (6)
  1. REZDIFFRA [Suspect]
     Active Substance: RESMETIROM
     Indication: Metabolic dysfunction-associated steatohepatitis
     Dosage: 80 MILLIGRAM, QD
     Route: 048
     Dates: start: 20240918, end: 20240924
  2. REPATHA [Concomitant]
     Active Substance: EVOLOCUMAB
     Dosage: 140 MILLIGRAM
  3. PANTOPRAZOLE [Concomitant]
     Active Substance: PANTOPRAZOLE
     Dosage: 40 MILLIGRAM
  4. MOUNJARO [Concomitant]
     Active Substance: TIRZEPATIDE
     Dosage: 5 MILLIGRAM
  5. LEVOTHYROXINE [Concomitant]
     Active Substance: LEVOTHYROXINE
     Dosage: 88 MICROGRAM
  6. VASCEPA [Concomitant]
     Active Substance: ICOSAPENT ETHYL
     Dosage: 1 GRAM

REACTIONS (5)
  - Chest pain [Recovered/Resolved]
  - Dysphagia [Recovered/Resolved]
  - White blood cell count increased [Unknown]
  - Heart rate increased [Recovering/Resolving]
  - Abdominal pain upper [Recovering/Resolving]

NARRATIVE: CASE EVENT DATE: 20240101
